FAERS Safety Report 18942469 (Version 4)
Quarter: 2022Q4

REPORT INFORMATION
  Report Type: Report from Study
  Country: PT (occurrence: IT)
  Receive Date: 20210225
  Receipt Date: 20221129
  Transmission Date: 20230113
  Serious: Yes (Life-Threatening)
  Sender: FDA-Public Use
  Company Number: IT-BIAL-BIAL-08329

PATIENT

DRUGS (10)
  1. ESLICARBAZEPINE ACETATE [Suspect]
     Active Substance: ESLICARBAZEPINE ACETATE
     Indication: Seizure prophylaxis
     Dosage: 800 MG, QD
     Route: 048
     Dates: start: 20210212, end: 20210214
  2. METOPROLOL [Suspect]
     Active Substance: METOPROLOL
     Indication: Atrial fibrillation
     Dosage: 100 MG, BID
     Route: 048
     Dates: start: 20210125
  3. METOPROLOL [Suspect]
     Active Substance: METOPROLOL
     Indication: Tachycardia
  4. DIGOXIN [Suspect]
     Active Substance: DIGOXIN
     Indication: Atrial fibrillation
     Dosage: 0.250 MG, QD
     Route: 048
     Dates: start: 20210211, end: 20210214
  5. ATORVASTATIN [Concomitant]
     Active Substance: ATORVASTATIN
     Indication: Cerebrovascular accident
     Dosage: 40 MG, QD
     Route: 048
     Dates: start: 20210208
  6. ATORVASTATIN [Concomitant]
     Active Substance: ATORVASTATIN
     Indication: Cerebrovascular accident prophylaxis
  7. ASPIRIN [Concomitant]
     Active Substance: ASPIRIN
     Indication: Cerebrovascular accident
     Dosage: 100 MG, QD
     Route: 048
     Dates: start: 20210208
  8. ASPIRIN [Concomitant]
     Active Substance: ASPIRIN
     Indication: Cerebrovascular accident prophylaxis
  9. PANTOPRAZOLE [Concomitant]
     Active Substance: PANTOPRAZOLE
     Indication: Gastrointestinal disorder prophylaxis
     Dosage: 20 MG, QD
     Route: 048
     Dates: start: 20210208
  10. ALTEPLASE [Concomitant]
     Active Substance: ALTEPLASE
     Indication: Ischaemic stroke
     Dosage: 56 MG, SINGLE
     Route: 042
     Dates: start: 20210208, end: 20210208

REACTIONS (1)
  - Nodal arrhythmia [Recovered/Resolved]

NARRATIVE: CASE EVENT DATE: 20210214
